FAERS Safety Report 5034427-4 (Version None)
Quarter: 2006Q2

REPORT INFORMATION
  Report Type: 
  Country: None (occurrence: None)
  Receive Date: 20060518
  Receipt Date: 20050816
  Transmission Date: 20061013
  Serious: Yes (Other)
  Sender: FDA-Public Use
  Company Number: 2005116626

PATIENT
  Age: 24 Year
  Sex: Female
  Weight: 72.5755 kg

DRUGS (2)
  1. DEPO-PROVERA [Suspect]
     Indication: CONTRACEPTION
     Dosage: SEE IMAGE
     Route: 030
     Dates: start: 20000630, end: 20000630
  2. DEPO-PROVERA [Suspect]
     Indication: CONTRACEPTION
     Dosage: SEE IMAGE
     Route: 030
     Dates: start: 20011101, end: 20011101

REACTIONS (3)
  - AMENORRHOEA [None]
  - HAEMORRHOIDS [None]
  - WEIGHT INCREASED [None]
